FAERS Safety Report 18150965 (Version 1)
Quarter: 2020Q3

REPORT INFORMATION
  Report Type: Spontaneous
  Country: NL (occurrence: NL)
  Receive Date: 20200814
  Receipt Date: 20200814
  Transmission Date: 20201103
  Serious: Yes (Hospitalization, Other)
  Sender: FDA-Public Use
  Company Number: NL-BAYER-2020-163054

PATIENT
  Age: 21 Year
  Sex: Female

DRUGS (1)
  1. YASMIN [Suspect]
     Active Substance: DROSPIRENONE\ETHINYL ESTRADIOL
     Indication: DYSMENORRHOEA
     Route: 048

REACTIONS (12)
  - Syncope [None]
  - Vomiting [None]
  - Thrombosis [None]
  - Dyspnoea [None]
  - Right atrial enlargement [None]
  - Pulmonary embolism [None]
  - Loss of consciousness [None]
  - Pneumonia [None]
  - Myalgia [None]
  - Dry mouth [None]
  - Panic reaction [None]
  - Infection [None]
